FAERS Safety Report 8075657-7 (Version None)
Quarter: 2012Q1

REPORT INFORMATION
  Report Type: 
  Country: None (occurrence: None)
  Receive Date: 20120127
  Receipt Date: 20120120
  Transmission Date: 20120608
  Serious: Yes (Death, Hospitalization, Other)
  Sender: FDA-Public Use
  Company Number: US-ROXANE LABORATORIES, INC.-2012-RO-00512RO

PATIENT
  Age: 17 Year
  Sex: Male

DRUGS (7)
  1. IMATINIB MESYLATE [Suspect]
     Dosage: 300 MG
     Dates: start: 20090601
  2. IMATINIB MESYLATE [Suspect]
     Dosage: 300 MG
  3. CORTICOSTEROID [Suspect]
     Dates: start: 20090701
  4. IMATINIB MESYLATE [Suspect]
     Dosage: 300 MG
     Dates: end: 20090701
  5. TACROLIMUS [Suspect]
     Indication: IMMUNOSUPPRESSION
  6. MYCOPHENOLATE MOFETIL [Suspect]
     Indication: IMMUNOSUPPRESSION
  7. IMATINIB MESYLATE [Suspect]
     Dosage: 400 MG

REACTIONS (4)
  - TRANSPLANT REJECTION [None]
  - H1N1 INFLUENZA [None]
  - CHRONIC MYELOID LEUKAEMIA [None]
  - BLOOD ALKALINE PHOSPHATASE INCREASED [None]
